FAERS Safety Report 9137434 (Version 1)
Quarter: 2013Q1

REPORT INFORMATION
  Report Type: Spontaneous
  Country: ES (occurrence: ES)
  Receive Date: 20130304
  Receipt Date: 20130304
  Transmission Date: 20140127
  Serious: Yes (Hospitalization)
  Sender: FDA-Public Use
  Company Number: ES-BRISTOL-MYERS SQUIBB COMPANY-17422437

PATIENT
  Age: 45 Year
  Sex: Male

DRUGS (3)
  1. REYATAZ [Suspect]
     Indication: HIV INFECTION
     Dates: start: 2010, end: 20120419
  2. RITONAVIR [Suspect]
     Indication: HIV INFECTION
     Dates: start: 2010
  3. TRUVADA [Suspect]
     Indication: HIV INFECTION
     Dates: start: 2010, end: 20120419

REACTIONS (1)
  - Renal colic [Recovered/Resolved]
